FAERS Safety Report 5955385-1 (Version None)
Quarter: 2008Q4

REPORT INFORMATION
  Report Type: 
  Country: None (occurrence: None)
  Receive Date: 20081113
  Receipt Date: 20081103
  Transmission Date: 20090506
  Serious: Yes (Death)
  Sender: FDA-Public Use
  Company Number: GXKR2008GB10503

PATIENT
  Weight: 0.3629 kg

DRUGS (1)
  1. GLIBENCLAMIDE (NGX) (GLIBENCLAMIDE) UNKNOWN [Suspect]
     Dosage: TRANSPLACENTAL
     Route: 064

REACTIONS (8)
  - CARDIOMEGALY [None]
  - FOETAL DISORDER [None]
  - MATERNAL DRUGS AFFECTING FOETUS [None]
  - NEONATAL DIABETES MELLITUS [None]
  - NEONATAL HYPOXIA [None]
  - PLACENTAL INFARCTION [None]
  - STILLBIRTH [None]
  - SWELLING FACE [None]
